FAERS Safety Report 22051867 (Version 1)
Quarter: 2023Q1

REPORT INFORMATION
  Report Type: Spontaneous
  Country: US (occurrence: US)
  Receive Date: 20230302
  Receipt Date: 20230302
  Transmission Date: 20230417
  Serious: Yes (Other)
  Sender: FDA-Public Use
  Company Number: US-TWI PHARMACEUTICAL, INC-2023SCTW000009

PATIENT

DRUGS (5)
  1. DILTIAZEM HYDROCHLORIDE [Interacting]
     Active Substance: DILTIAZEM HYDROCHLORIDE
     Indication: Hypertension
     Dosage: 180 MG, BID
     Route: 065
  2. CLOZAPINE [Interacting]
     Active Substance: CLOZAPINE
     Indication: Suicidal ideation
     Dosage: 100 MG, (MORNING)
     Route: 048
  3. CLOZAPINE [Interacting]
     Active Substance: CLOZAPINE
     Dosage: 400 MG (BEDTIME)
     Route: 048
  4. CLOZAPINE [Interacting]
     Active Substance: CLOZAPINE
     Dosage: 100 MG, BID
     Route: 048
  5. FLUOXETINE [Interacting]
     Active Substance: FLUOXETINE HYDROCHLORIDE
     Indication: Hypertension
     Dosage: 20 MG, QD
     Route: 065

REACTIONS (4)
  - Electrocardiogram QT prolonged [Recovering/Resolving]
  - Toxicity to various agents [Recovering/Resolving]
  - Drug interaction [Recovering/Resolving]
  - Ventricular extrasystoles [Recovering/Resolving]
